FAERS Safety Report 6986450-8 (Version None)
Quarter: 2010Q3

REPORT INFORMATION
  Report Type: 
  Country: None (occurrence: None)
  Receive Date: 20100915
  Receipt Date: 20090812
  Transmission Date: 20110219
  Serious: No
  Sender: FDA-Public Use
  Company Number: US-WYE-H10117109

PATIENT
  Sex: Female
  Weight: 77.63 kg

DRUGS (3)
  1. PRISTIQ [Suspect]
     Indication: MAJOR DEPRESSION
     Route: 048
     Dates: start: 20090705, end: 20090709
  2. PREMARIN [Concomitant]
     Dosage: UNKNOWN
  3. SYNTHROID [Concomitant]
     Dosage: UNKNOWN

REACTIONS (4)
  - CONFUSIONAL STATE [None]
  - DISTURBANCE IN ATTENTION [None]
  - FATIGUE [None]
  - SWOLLEN TONGUE [None]
